FAERS Safety Report 8618236-2 (Version None)
Quarter: 2012Q3

REPORT INFORMATION
  Report Type: 
  Country: None (occurrence: None)
  Receive Date: 20120824
  Receipt Date: 20120820
  Transmission Date: 20120928
  Serious: Yes (Life-Threatening)
  Sender: FDA-Public Use
  Company Number: JP-009507513-1208JPN009140

PATIENT

DRUGS (3)
  1. ISENTRESS [Suspect]
     Indication: HIV INFECTION
     Dosage: 800 MG, QD
     Route: 048
     Dates: start: 20101020, end: 20101027
  2. TRUVADA [Suspect]
     Indication: HIV INFECTION
     Dosage: 1 DF, QD
     Route: 048
     Dates: start: 20101020, end: 20101027
  3. ISENTRESS [Suspect]
     Dosage: 800 MG, QD
     Route: 048
     Dates: start: 20101110

REACTIONS (2)
  - SEPSIS [None]
  - RENAL TUBULAR NECROSIS [None]
